FAERS Safety Report 18617011 (Version 1)
Quarter: 2020Q4

REPORT INFORMATION
  Report Type: Spontaneous
  Country: PL (occurrence: PL)
  Receive Date: 20201215
  Receipt Date: 20201215
  Transmission Date: 20210114
  Serious: Yes (Other)
  Sender: FDA-Public Use
  Company Number: PL-ACCORD-210744

PATIENT
  Age: 60 Year
  Weight: 68 kg

DRUGS (1)
  1. GEMCITABIN ACCORD [Suspect]
     Active Substance: GEMCITABINE\GEMCITABINE HYDROCHLORIDE
     Indication: PANCREATIC CARCINOMA
     Route: 042
     Dates: start: 20170728, end: 20171013

REACTIONS (3)
  - Transaminases increased [Recovering/Resolving]
  - Liver injury [Recovering/Resolving]
  - Blood bilirubin increased [Recovering/Resolving]

NARRATIVE: CASE EVENT DATE: 20171116
